FAERS Safety Report 8654017 (Version 4)
Quarter: 2013Q3

REPORT INFORMATION
  Report Type: Spontaneous
  Country: US (occurrence: None)
  Receive Date: 20120622
  Receipt Date: 20130912
  Transmission Date: 20140515
  Serious: Yes (Hospitalization, Other)
  Sender: FDA-Public Use
  Company Number: JPI-P-021900

PATIENT
  Age: 40 Year
  Sex: Male
  Weight: 79.5 kg

DRUGS (3)
  1. XYREM [Suspect]
     Indication: CATAPLEXY
     Dosage: SINGLE (TITRATING DOSE)
     Route: 048
     Dates: start: 20111102
  2. SERTRALINE HYDROCHLORIDE [Concomitant]
  3. CLONAZEPAM [Concomitant]

REACTIONS (3)
  - Jaw fracture [None]
  - Victim of crime [None]
  - Nerve injury [None]
